FAERS Safety Report 14936566 (Version 1)
Quarter: 2018Q2

REPORT INFORMATION
  Report Type: Spontaneous
  Country: US (occurrence: US)
  Receive Date: 20180525
  Receipt Date: 20180525
  Transmission Date: 20180711
  Serious: No
  Sender: FDA-Public Use
  Company Number: US-TEVA-823034USA

PATIENT
  Sex: Female

DRUGS (1)
  1. CLONIDINE. [Suspect]
     Active Substance: CLONIDINE
     Indication: HYPERTENSION
     Dosage: .2 MILLIGRAM DAILY;
     Route: 062
     Dates: start: 201611

REACTIONS (8)
  - Adverse event [Unknown]
  - Dry skin [Unknown]
  - Dry eye [Unknown]
  - Lip dry [Unknown]
  - Drug dose titration not performed [Unknown]
  - Rash [Not Recovered/Not Resolved]
  - Vulvovaginal dryness [Unknown]
  - Drug ineffective [Unknown]

NARRATIVE: CASE EVENT DATE: 2017
